FAERS Safety Report 4302478-0 (Version None)
Quarter: 2004Q1

REPORT INFORMATION
  Report Type: 
  Country: None (occurrence: None)
  Receive Date: 20040218
  Receipt Date: 20031022
  Transmission Date: 20041129
  Serious: Yes (Other)
  Sender: FDA-Public Use
  Company Number: 200316875US

PATIENT
  Age: 40 Year
  Sex: Male

DRUGS (7)
  1. LANTUS [Suspect]
     Indication: DIABETES MELLITUS INSULIN-DEPENDENT
     Dosage: 36 U HS
     Dates: start: 20020701, end: 20030609
  2. LANTUS [Suspect]
     Indication: DIABETES MELLITUS INSULIN-DEPENDENT
     Dosage: 25 U
     Dates: start: 20030610, end: 20030722
  3. LANTUS [Suspect]
     Indication: DIABETES MELLITUS INSULIN-DEPENDENT
     Dosage: 15 U
     Dates: start: 20020723
  4. DEPAKOTE [Suspect]
     Indication: CONVULSION
     Dosage: 500 MG QD
     Dates: start: 20030609
  5. SIMVASTATIN [Concomitant]
  6. HUMALOG [Concomitant]
  7. WARFARIN SODIUM (COUMADINE) [Concomitant]

REACTIONS (4)
  - BLOOD GLUCOSE DECREASED [None]
  - BLOOD GLUCOSE FLUCTUATION [None]
  - DEPRESSED LEVEL OF CONSCIOUSNESS [None]
  - HYPOGLYCAEMIA [None]
